FAERS Safety Report 6600651-X (Version None)
Quarter: 2010Q1

REPORT INFORMATION
  Report Type: 
  Country: None (occurrence: None)
  Receive Date: 20100223
  Receipt Date: 20100223
  Transmission Date: 20100710
  Serious: Yes (Other)
  Sender: FDA-Public Use
  Company Number: None

PATIENT
  Age: 30 Year
  Sex: Female
  Weight: 85.2762 kg

DRUGS (1)
  1. MACROBID [Suspect]
     Indication: URINARY TRACT INFECTION
     Dosage: 100 MG 2 X DAY  200 MG
     Dates: start: 20100115, end: 20100125

REACTIONS (3)
  - ABORTION SPONTANEOUS [None]
  - DRUG EXPOSURE DURING PREGNANCY [None]
  - VAGINAL HAEMORRHAGE [None]
